FAERS Safety Report 21654213 (Version 1)
Quarter: 2022Q4

REPORT INFORMATION
  Report Type: Report from Study
  Country: US (occurrence: US)
  Receive Date: 20221129
  Receipt Date: 20221129
  Transmission Date: 20230113
  Serious: No
  Sender: FDA-Public Use
  Company Number: US-ABBVIE-4216083

PATIENT
  Sex: Male

DRUGS (1)
  1. IMBRUVICA [Suspect]
     Active Substance: IBRUTINIB
     Indication: Monoclonal gammopathy
     Route: 048
     Dates: start: 202211

REACTIONS (5)
  - Dizziness [Unknown]
  - Fatigue [Unknown]
  - Nail discolouration [Unknown]
  - Haemorrhage [Unknown]
  - Contusion [Unknown]
